FAERS Safety Report 22676595 (Version 3)
Quarter: 2024Q1

REPORT INFORMATION
  Report Type: Spontaneous
  Country: US (occurrence: US)
  Receive Date: 20230706
  Receipt Date: 20240209
  Transmission Date: 20240410
  Serious: Yes (Hospitalization, Other)
  Sender: FDA-Public Use
  Company Number: US-TORRENT-00012732

PATIENT
  Age: 74 Year
  Sex: Male

DRUGS (4)
  1. OLMESARTAN [Suspect]
     Active Substance: OLMESARTAN
     Indication: Hypertension
     Dosage: UNKNOWN
     Route: 065
  2. OMEPRAZOLE [Suspect]
     Active Substance: OMEPRAZOLE
     Indication: Gastrooesophageal reflux disease
     Dosage: UNKNOWN
     Route: 065
  3. ACYCLOVIR [Concomitant]
     Active Substance: ACYCLOVIR
     Indication: Ophthalmic herpes simplex
     Dosage: UNKNOWN
     Route: 065
  4. ROSUVASTATIN [Concomitant]
     Active Substance: ROSUVASTATIN
     Indication: Hyperlipidaemia
     Dosage: UNKNOWN
     Route: 065

REACTIONS (4)
  - Pancreatitis necrotising [Recovering/Resolving]
  - Sepsis [Unknown]
  - Pancreatic abscess [Unknown]
  - Bacteraemia [Unknown]
